FAERS Safety Report 12471654 (Version 1)
Quarter: 2016Q2

REPORT INFORMATION
  Report Type: Spontaneous
  Country: US (occurrence: None)
  Receive Date: 20160615
  Receipt Date: 20160615
  Transmission Date: 20160815
  Serious: Yes (Hospitalization)
  Sender: FDA-Public Use
  Company Number: None

PATIENT
  Age: 51 Year
  Sex: Female
  Weight: 80.6 kg

DRUGS (15)
  1. ASA [Concomitant]
     Active Substance: ASPIRIN
  2. VITAMIN D3 [Concomitant]
     Active Substance: CHOLECALCIFEROL
  3. LIPITOR [Concomitant]
     Active Substance: ATORVASTATIN CALCIUM
  4. TRIGLIDE [Concomitant]
     Active Substance: FENOFIBRATE
  5. LANTUS [Concomitant]
     Active Substance: INSULIN GLARGINE
  6. ALBUTEROL. [Concomitant]
     Active Substance: ALBUTEROL
  7. FARKIGA [Concomitant]
  8. MS CONTIN [Suspect]
     Active Substance: MORPHINE SULFATE
     Dosage: 15MG 12HR TABLET
  9. MORPHINE [Suspect]
     Active Substance: MORPHINE
     Dosage: 4MG PO Q 2HRS PRN
     Route: 048
  10. BIOTIN [Concomitant]
     Active Substance: BIOTIN
  11. COREG [Concomitant]
     Active Substance: CARVEDILOL
  12. ADVAIR HFA [Concomitant]
     Active Substance: FLUTICASONE PROPIONATE\SALMETEROL XINAFOATE
  13. IMDU [Concomitant]
  14. NORCO [Suspect]
     Active Substance: ACETAMINOPHEN\HYDROCODONE BITARTRATE
     Indication: PAIN
     Dosage: 7.5/3.325MG X 1 TABLET Q4HRS PRN PO
     Route: 048
  15. CLONAZEPAM. [Suspect]
     Active Substance: CLONAZEPAM
     Indication: ANXIETY
     Route: 048

REACTIONS (3)
  - Skin discolouration [None]
  - Depressed level of consciousness [None]
  - Hypotension [None]

NARRATIVE: CASE EVENT DATE: 20151008
